FAERS Safety Report 8249411-7 (Version None)
Quarter: 2012Q2

REPORT INFORMATION
  Report Type: 
  Country: None (occurrence: None)
  Receive Date: 20120402
  Receipt Date: 20120323
  Transmission Date: 20120825
  Serious: Yes (Hospitalization)
  Sender: FDA-Public Use
  Company Number: US-BAYER-2011-038603

PATIENT
  Age: 21 Year
  Sex: Female
  Weight: 97.052 kg

DRUGS (2)
  1. YASMIN [Suspect]
     Indication: PREMENSTRUAL SYNDROME
  2. YASMIN [Suspect]
     Indication: CONTRACEPTION
     Dosage: UNK
     Dates: start: 20060101, end: 20070101

REACTIONS (4)
  - PAIN [None]
  - ANHEDONIA [None]
  - GALLBLADDER DISORDER [None]
  - ANXIETY [None]
